FAERS Safety Report 6881955-2 (Version None)
Quarter: 2010Q3

REPORT INFORMATION
  Report Type: 
  Country: None (occurrence: None)
  Receive Date: 20100727
  Receipt Date: 20100712
  Transmission Date: 20110219
  Serious: Yes (Other)
  Sender: FDA-Public Use
  Company Number: US-MYLANLABS-2010S1012299

PATIENT
  Age: 65 Year
  Sex: Female

DRUGS (18)
  1. DENOSUMAB [Interacting]
     Dosage: ADMINISTERED FOR 3 WEEKS FOLLOWED BY A 2 WEEK BREAK
     Route: 058
  2. DENOSUMAB [Interacting]
     Dosage: ADMINISTERED AS LONG AS SHE CONTINUED TO IMPROVE
     Route: 065
  3. ALENDRONIC ACID [Suspect]
     Route: 065
  4. LIPITOR [Concomitant]
     Route: 065
  5. OMEPRAZOLE [Concomitant]
     Route: 065
  6. LISINOPRIL [Concomitant]
     Route: 065
  7. PREMARIN [Concomitant]
     Route: 065
  8. LASIX [Concomitant]
     Route: 065
  9. SYNTHROID [Concomitant]
     Route: 065
  10. ACTOS [Concomitant]
     Route: 065
  11. GLIBENCLAMIDE [Concomitant]
     Route: 065
  12. POTASSIUM CHLORIDE [Concomitant]
     Route: 065
  13. GLYCOLAX [Concomitant]
     Route: 065
  14. LORAZEPAM [Concomitant]
     Route: 065
  15. DILAUDID [Concomitant]
     Route: 065
  16. NITROFURANTOIN [Concomitant]
     Route: 065
  17. FENTANYL [Concomitant]
     Route: 065
  18. LYRICA [Concomitant]
     Route: 065

REACTIONS (2)
  - DRUG INTERACTION [None]
  - OSTEONECROSIS OF JAW [None]
